FAERS Safety Report 8011220-1 (Version None)
Quarter: 2011Q4

REPORT INFORMATION
  Report Type: 
  Country: None (occurrence: None)
  Receive Date: 20111228
  Receipt Date: 20111222
  Transmission Date: 20120403
  Serious: Yes (Other)
  Sender: FDA-Public Use
  Company Number: US-JNJFOC-20111209917

PATIENT
  Age: 21 Year
  Sex: Female
  Weight: 63.96 kg

DRUGS (8)
  1. IBUPROFEN [Concomitant]
     Dosage: OCCASIONAL
     Route: 065
  2. IRON SUPPLEMENT [Concomitant]
     Route: 065
  3. ORAL CONTRACEPTIVE [Concomitant]
     Route: 065
  4. VITAMINE E [Concomitant]
     Route: 065
  5. REMICADE [Suspect]
     Indication: CROHN'S DISEASE
     Route: 042
  6. MULTI-VITAMINS [Concomitant]
     Route: 065
  7. PENTASA [Concomitant]
     Route: 065
  8. FLAGYL [Concomitant]
     Indication: GINGIVITIS
     Route: 065
     Dates: start: 20110101

REACTIONS (2)
  - NECROTISING ULCERATIVE GINGIVOSTOMATITIS [None]
  - DIARRHOEA [None]
